FAERS Safety Report 6369897-2 (Version None)
Quarter: 2009Q3

REPORT INFORMATION
  Report Type: 
  Country: None (occurrence: None)
  Receive Date: 20090923
  Receipt Date: 20070604
  Transmission Date: 20100115
  Serious: Yes (Hospitalization, Other)
  Sender: FDA-Public Use
  Company Number: US-ASTRAZENECA-2006UW11598

PATIENT
  Age: 43 Year
  Sex: Male
  Weight: 170.6 kg

DRUGS (11)
  1. SEROQUEL [Suspect]
     Route: 048
     Dates: start: 20010101, end: 20060101
  2. SEROQUEL [Suspect]
     Dosage: 100 MG TO 400 MG
     Route: 048
     Dates: start: 20010914
  3. ABILIFY [Concomitant]
     Route: 048
     Dates: start: 20060930
  4. RISPERDAL [Concomitant]
     Route: 048
     Dates: start: 20010112
  5. ALLOPURINOL [Concomitant]
     Route: 048
     Dates: start: 20010108
  6. DILTIAZEM [Concomitant]
     Route: 048
     Dates: start: 20010126
  7. EFFEXOR [Concomitant]
     Route: 048
     Dates: start: 20010420
  8. ALPRAZOLAM [Concomitant]
     Route: 048
     Dates: start: 20010420
  9. CYCLOBENZAPRINE [Concomitant]
     Route: 048
     Dates: start: 20010428
  10. XANAX [Concomitant]
     Route: 048
     Dates: start: 20050307
  11. CARBAMAZEPINE [Concomitant]
     Route: 048
     Dates: start: 20060519

REACTIONS (4)
  - DIABETES MELLITUS [None]
  - DIABETIC COMA [None]
  - DIABETIC KETOACIDOSIS [None]
  - TYPE 1 DIABETES MELLITUS [None]
